FAERS Safety Report 15549628 (Version 1)
Quarter: 2018Q4

REPORT INFORMATION
  Report Type: Spontaneous
  Country: US (occurrence: US)
  Receive Date: 20181024
  Receipt Date: 20181024
  Transmission Date: 20190205
  Serious: No
  Sender: FDA-Public Use
  Company Number: None

PATIENT
  Age: 21 Year
  Sex: Male

DRUGS (5)
  1. LAMOTRIGINE. [Suspect]
     Active Substance: LAMOTRIGINE
     Indication: BIPOLAR DISORDER
     Route: 048
     Dates: start: 20181018, end: 20181024
  2. BUPROPION. [Concomitant]
     Active Substance: BUPROPION
     Dates: start: 20180731
  3. LURASIDONE [Concomitant]
     Active Substance: LURASIDONE
     Dates: start: 20180730
  4. LITHIUM. [Concomitant]
     Active Substance: LITHIUM
     Dates: start: 20180730
  5. CLONIDINE. [Concomitant]
     Active Substance: CLONIDINE
     Dates: start: 20180730

REACTIONS (1)
  - Headache [None]

NARRATIVE: CASE EVENT DATE: 20181024
